FAERS Safety Report 18226441 (Version 1)
Quarter: 2020Q3

REPORT INFORMATION
  Report Type: Report from Study
  Country: UG (occurrence: UG)
  Receive Date: 20200903
  Receipt Date: 20200903
  Transmission Date: 20201103
  Serious: Yes (Hospitalization)
  Sender: FDA-Public Use
  Company Number: UG-VIIV HEALTHCARE LIMITED-UG2020GSK174084

PATIENT
  Age: 14 Year
  Sex: Male
  Weight: 30.3 kg

DRUGS (1)
  1. ABACAVIRSULPHATE+DOLUTEGRAVIR+LAMIVUDINE [Suspect]
     Active Substance: ABACAVIR SULFATE\DOLUTEGRAVIR SODIUM\LAMIVUDINE
     Indication: HIV INFECTION
     Dosage: 1
     Dates: start: 20180516

REACTIONS (2)
  - Joint dislocation [Recovered/Resolved]
  - Humerus fracture [Recovered/Resolved]

NARRATIVE: CASE EVENT DATE: 20200817
